FAERS Safety Report 21268122 (Version 1)
Quarter: 2022Q3

REPORT INFORMATION
  Report Type: Spontaneous
  Country: AU (occurrence: AU)
  Receive Date: 20220829
  Receipt Date: 20220829
  Transmission Date: 20221027
  Serious: Yes (Other)
  Sender: FDA-Public Use
  Company Number: AU-BIOGEN-2022BI01150626

PATIENT
  Age: 48 Year
  Sex: Female

DRUGS (2)
  1. TYSABRI [Suspect]
     Active Substance: NATALIZUMAB
     Indication: Product used for unknown indication
     Route: 050
  2. LEVLEN [Concomitant]
     Active Substance: ETHINYL ESTRADIOL\LEVONORGESTREL
     Indication: Product used for unknown indication
     Route: 050

REACTIONS (7)
  - Pemphigoid [Unknown]
  - Pemphigus [Unknown]
  - Skin atrophy [Unknown]
  - Blister [Unknown]
  - Rash pruritic [Unknown]
  - Skin exfoliation [Unknown]
  - Urticaria [Unknown]
